FAERS Safety Report 15755299 (Version 5)
Quarter: 2021Q3

REPORT INFORMATION
  Report Type: Spontaneous
  Country: SI (occurrence: SI)
  Receive Date: 20181224
  Receipt Date: 20210820
  Transmission Date: 20211014
  Serious: Yes (Death, Hospitalization, Other)
  Sender: FDA-Public Use
  Company Number: SI-B.I. PHARMACEUTICALS,INC./RIDGEFIELD-2018-BI-060558

PATIENT
  Age: 82 Year
  Sex: Female

DRUGS (10)
  1. WARFARIN [WARFARIN SODIUM] [Suspect]
     Active Substance: WARFARIN SODIUM
     Indication: ANTICOAGULANT THERAPY
     Dosage: UNK
     Route: 048
  2. ROSUVASTATIN. [Concomitant]
     Active Substance: ROSUVASTATIN
     Indication: PRODUCT USED FOR UNKNOWN INDICATION
  3. LEVOTHYROXINE. [Concomitant]
     Active Substance: LEVOTHYROXINE
     Indication: PRODUCT USED FOR UNKNOWN INDICATION
  4. PRADAXA [Suspect]
     Active Substance: DABIGATRAN ETEXILATE MESYLATE
     Indication: ANTICOAGULANT THERAPY
  5. BISOPROLOL [Concomitant]
     Active Substance: BISOPROLOL
     Indication: PRODUCT USED FOR UNKNOWN INDICATION
  6. WARFARIN [WARFARIN SODIUM] [Suspect]
     Active Substance: WARFARIN SODIUM
     Indication: CHRONIC KIDNEY DISEASE
  7. PRADAXA [Suspect]
     Active Substance: DABIGATRAN ETEXILATE MESYLATE
     Indication: ATRIAL FIBRILLATION
     Route: 048
  8. PRADAXA [Suspect]
     Active Substance: DABIGATRAN ETEXILATE MESYLATE
     Indication: TRANSIENT ISCHAEMIC ATTACK
  9. MEMANTINE. [Concomitant]
     Active Substance: MEMANTINE
     Indication: COGNITIVE DISORDER
     Route: 065
  10. INSULIN [Concomitant]
     Active Substance: INSULIN NOS
     Indication: TYPE 2 DIABETES MELLITUS
     Route: 065

REACTIONS (20)
  - Gastrointestinal haemorrhage [Unknown]
  - Anticoagulation drug level increased [Recovering/Resolving]
  - Confusional state [Unknown]
  - Haematuria [Recovering/Resolving]
  - Acute kidney injury [Recovering/Resolving]
  - Anticoagulant-related nephropathy [Fatal]
  - Disease recurrence [Unknown]
  - Renal tubular injury [Recovering/Resolving]
  - Blood creatinine increased [Recovering/Resolving]
  - Anticoagulation drug level above therapeutic [Recovering/Resolving]
  - Haematoma infection [Fatal]
  - Hyponatraemia [Unknown]
  - Haemorrhage [Unknown]
  - Anticoagulant-related nephropathy [Recovering/Resolving]
  - Condition aggravated [Fatal]
  - Septic shock [Fatal]
  - Subcapsular renal haematoma [Unknown]
  - Gastric occult blood positive [Recovering/Resolving]
  - Renal impairment [Recovering/Resolving]
  - Normocytic anaemia [Recovering/Resolving]
